FAERS Safety Report 9603083 (Version 2)
Quarter: 2013Q4

REPORT INFORMATION
  Report Type: Report from Study
  Country: DE (occurrence: DE)
  Receive Date: 20131007
  Receipt Date: 20131017
  Transmission Date: 20140711
  Serious: Yes (Other)
  Sender: FDA-Public Use
  Company Number: DE-SA-2013SA096899

PATIENT
  Age: 80 Year
  Sex: Female
  Weight: 61 kg

DRUGS (8)
  1. MULTAQ [Suspect]
     Indication: ATRIAL FIBRILLATION
     Route: 065
     Dates: start: 20121214, end: 20121215
  2. VIT K ANTAGONISTS [Concomitant]
     Dates: start: 201003
  3. BETA BLOCKING AGENTS [Concomitant]
     Dates: start: 201003
  4. NEBIVOLOL [Concomitant]
  5. CANDESARTAN [Concomitant]
  6. RAMIPRIL [Concomitant]
  7. TORASEMIDE [Concomitant]
  8. COMTESS [Concomitant]

REACTIONS (3)
  - Dizziness [Unknown]
  - Hyperthyroidism [Unknown]
  - Atrial fibrillation [Unknown]
